FAERS Safety Report 23637522 (Version 1)
Quarter: 2024Q1

REPORT INFORMATION
  Report Type: Spontaneous
  Country: IT (occurrence: IT)
  Receive Date: 20240315
  Receipt Date: 20240315
  Transmission Date: 20240410
  Serious: Yes (Hospitalization, Other)
  Sender: FDA-Public Use
  Company Number: None

PATIENT
  Age: 25 Year
  Sex: Male

DRUGS (20)
  1. ACETAMINOPHEN [Suspect]
     Active Substance: ACETAMINOPHEN
     Indication: Pain
     Dosage: UNK
     Route: 065
     Dates: start: 201811
  2. ACETAMINOPHEN [Suspect]
     Active Substance: ACETAMINOPHEN
     Indication: Postoperative analgesia
     Dosage: UNK
     Route: 065
     Dates: start: 201806
  3. CANNABIS SATIVA SUBSP. INDICA TOP [Suspect]
     Active Substance: CANNABIS SATIVA SUBSP. INDICA TOP
     Indication: Product used for unknown indication
     Dosage: 1-2 G/DAY
     Route: 065
  4. ETORICOXIB [Suspect]
     Active Substance: ETORICOXIB
     Indication: Postoperative analgesia
     Dosage: UNK
     Route: 065
     Dates: start: 201811
  5. ETORICOXIB [Suspect]
     Active Substance: ETORICOXIB
     Indication: Postoperative analgesia
     Dosage: UNK
     Route: 065
     Dates: start: 201811
  6. ETORICOXIB [Suspect]
     Active Substance: ETORICOXIB
     Indication: Pain
  7. ETORICOXIB [Suspect]
     Active Substance: ETORICOXIB
     Indication: Pain
  8. METHADONE [Suspect]
     Active Substance: METHADONE HYDROCHLORIDE
     Indication: Postoperative analgesia
     Dosage: 30 MG, QD
     Route: 048
  9. METHADONE [Suspect]
     Active Substance: METHADONE HYDROCHLORIDE
     Dosage: 5 MG, QD, IN THE MORNING
     Route: 048
     Dates: start: 2019
  10. ACETAMINOPHEN [Suspect]
     Active Substance: ACETAMINOPHEN
     Indication: Postoperative analgesia
     Dosage: UNK
     Route: 065
     Dates: start: 201806
  11. ACETAMINOPHEN [Suspect]
     Active Substance: ACETAMINOPHEN
     Indication: Pain
  12. PREGABALIN [Suspect]
     Active Substance: PREGABALIN
     Indication: Pain
     Dosage: 1500 MG, QD
     Route: 065
  13. PREGABALIN [Suspect]
     Active Substance: PREGABALIN
     Dosage: REDUCING THE PREGABALIN DOSE BY ABOUT 25 MG/DAY
     Route: 065
  14. PREGABALIN [Suspect]
     Active Substance: PREGABALIN
     Dosage: 300 MG, QD
     Route: 065
  15. PREGABALIN [Suspect]
     Active Substance: PREGABALIN
     Indication: Pain
     Dosage: DAILY DOSE OF 900/1500 MG AT THE TIME OF ADMISSION; HIGHEST DOSE TAKEN: 3000 MG/DAY
     Route: 048
     Dates: start: 201807, end: 201901
  16. PREGABALIN [Suspect]
     Active Substance: PREGABALIN
     Dosage: ADDITIONAL LOW DOSAGES OF PREGABALIN (25-50 MG/DAY
     Route: 065
  17. PREGABALIN [Suspect]
     Active Substance: PREGABALIN
     Dosage: 75 MG, QD
     Route: 065
  18. PREGABALIN [Suspect]
     Active Substance: PREGABALIN
     Dosage: 900 MG, QD
     Route: 048
  19. ADEMETIONINE [Concomitant]
     Active Substance: ADEMETIONINE
     Indication: Postoperative analgesia
     Dosage: UNK
     Route: 065
     Dates: start: 201811
  20. ADEMETIONINE [Concomitant]
     Active Substance: ADEMETIONINE
     Indication: Pain

REACTIONS (38)
  - Drug use disorder [Recovered/Resolved]
  - Dyspnoea [Recovered/Resolved]
  - Depersonalisation/derealisation disorder [Recovered/Resolved]
  - Fatigue [Recovered/Resolved]
  - Back pain [Recovered/Resolved]
  - Headache [Recovered/Resolved]
  - Intentional overdose [Recovered/Resolved]
  - Photophobia [Recovered/Resolved]
  - Phonophobia [Recovered/Resolved]
  - Nausea [Recovering/Resolving]
  - Dysphoria [Recovered/Resolved]
  - Mood swings [Recovered/Resolved]
  - Confusional state [Recovered/Resolved]
  - Disturbance in attention [Recovered/Resolved]
  - Visual impairment [Recovered/Resolved]
  - Insomnia [Recovered/Resolved]
  - Irritability [Recovered/Resolved]
  - Influenza like illness [Recovered/Resolved]
  - Intentional product use issue [Recovered/Resolved]
  - Derealisation [Recovered/Resolved]
  - Palpitations [Recovered/Resolved]
  - Euphoric mood [Recovered/Resolved]
  - Withdrawal syndrome [Recovered/Resolved]
  - Dissociative disorder [Recovered/Resolved]
  - Dizziness [Recovered/Resolved]
  - Nervousness [Recovered/Resolved]
  - Agitation [Recovered/Resolved]
  - Myalgia [Recovered/Resolved]
  - Eye pain [Recovered/Resolved]
  - Tachycardia [Recovered/Resolved]
  - Constipation [Recovering/Resolving]
  - Panic attack [Unknown]
  - Anxiety [Unknown]
  - Decreased appetite [Recovered/Resolved]
  - Hyperphagia [Recovered/Resolved]
  - Eye pain [Recovered/Resolved]
  - Tension [Recovered/Resolved]
  - Delayed sleep phase [Recovered/Resolved]

NARRATIVE: CASE EVENT DATE: 20180101
